FAERS Safety Report 21232564 (Version 1)
Quarter: 2022Q3

REPORT INFORMATION
  Report Type: Spontaneous
  Country: US (occurrence: None)
  Receive Date: 20220819
  Receipt Date: 20220819
  Transmission Date: 20221026
  Serious: Yes (Other)
  Sender: FDA-Public Use
  Company Number: US-ROCHE-3158254

PATIENT
  Sex: Female
  Weight: 87.168 kg

DRUGS (4)
  1. AVASTIN [Suspect]
     Active Substance: BEVACIZUMAB
     Indication: Retinal disorder
     Dosage: YES
     Route: 050
     Dates: start: 2018
  2. LOTEPREDNOL [Concomitant]
     Active Substance: LOTEPREDNOL
     Route: 031
  3. BROMSITE [Concomitant]
     Active Substance: BROMFENAC SODIUM
     Route: 031
  4. BRIMONIDINE TARTRATE [Concomitant]
     Active Substance: BRIMONIDINE TARTRATE
     Route: 031

REACTIONS (6)
  - Vitreous floaters [Not Recovered/Not Resolved]
  - Eye irritation [Not Recovered/Not Resolved]
  - Off label use [Unknown]
  - Blister [Not Recovered/Not Resolved]
  - Hypoaesthesia eye [Unknown]
  - Retinal injury [Unknown]

NARRATIVE: CASE EVENT DATE: 20180101
